FAERS Safety Report 12654049 (Version 1)
Quarter: 2016Q3

REPORT INFORMATION
  Report Type: Spontaneous
  Country: US (occurrence: None)
  Receive Date: 20160815
  Receipt Date: 20160815
  Transmission Date: 20161109
  Serious: Yes (Other)
  Sender: FDA-Public Use
  Company Number: None

PATIENT
  Age: 81 Year
  Sex: Male

DRUGS (1)
  1. ESZOPICLONE, 3MG [Suspect]
     Active Substance: ESZOPICLONE
     Indication: INSOMNIA
     Route: 048
     Dates: start: 20160610, end: 20160812

REACTIONS (5)
  - Drug effect decreased [None]
  - Product substitution issue [None]
  - Speech disorder [None]
  - Sleep disorder [None]
  - Enuresis [None]

NARRATIVE: CASE EVENT DATE: 20160812
